FAERS Safety Report 8533252-7 (Version None)
Quarter: 2012Q2

REPORT INFORMATION
  Report Type: 
  Country: None (occurrence: None)
  Receive Date: 20120412
  Receipt Date: 20120105
  Transmission Date: 20120825
  Serious: Yes (Life-Threatening)
  Sender: FDA-Public Use
  Company Number: 2012S1000002

PATIENT
  Age: 56 Year
  Sex: Male
  Weight: 72.5755 kg

DRUGS (9)
  1. KRYSTEXXA [Suspect]
     Indication: GOUT
     Dosage: 8 MG;X1;IV 8 MG;X1;IV 8 MG;X1;IV
     Route: 042
     Dates: start: 20110914, end: 20110914
  2. KRYSTEXXA [Suspect]
     Indication: GOUT
     Dosage: 8 MG;X1;IV 8 MG;X1;IV 8 MG;X1;IV
     Route: 042
     Dates: start: 20111012, end: 20111012
  3. KRYSTEXXA [Suspect]
     Indication: GOUT
     Dosage: 8 MG;X1;IV 8 MG;X1;IV 8 MG;X1;IV
     Route: 042
     Dates: start: 20110927, end: 20110927
  4. KRYSTEXXA [Suspect]
     Indication: GOUT
     Dosage: 8 MG;X1;IV 8 MG;X1;IV 8 MG;X1;IV
     Route: 042
     Dates: start: 20111026, end: 20111026
  5. FEXOFENADINE [Concomitant]
  6. COLCHICINE [Concomitant]
  7. SOLU-CORTEF [Concomitant]
  8. PROTONIX [Concomitant]
  9. PREDNISONE [Concomitant]

REACTIONS (2)
  - THERAPEUTIC RESPONSE DECREASED [None]
  - INFUSION RELATED REACTION [None]
